FAERS Safety Report 8554386-7 (Version None)
Quarter: 2012Q3

REPORT INFORMATION
  Report Type: 
  Country: None (occurrence: None)
  Receive Date: 20120731
  Receipt Date: 20120723
  Transmission Date: 20120928
  Serious: Yes (Hospitalization)
  Sender: FDA-Public Use
  Company Number: US-009507513-1207USA010620

PATIENT

DRUGS (4)
  1. ZOCOR [Suspect]
     Dosage: 20 MG, QD
     Route: 048
  2. LEVOFLOXACIN [Suspect]
     Dosage: 750 MG, QD
  3. AMOXICILLIN AND CLAVULANATE POTASSIUM [Concomitant]
  4. CEFDINIR [Concomitant]

REACTIONS (7)
  - ARTHRITIS BACTERIAL [None]
  - TENDON DISORDER [None]
  - OSTEOARTHRITIS [None]
  - DRUG INEFFECTIVE [None]
  - WEIGHT DECREASED [None]
  - BONE DISORDER [None]
  - INFLAMMATION [None]
